FAERS Safety Report 11658213 (Version 1)
Quarter: 2015Q4

REPORT INFORMATION
  Report Type: Spontaneous
  Country: KR (occurrence: KR)
  Receive Date: 20151025
  Receipt Date: 20151025
  Transmission Date: 20160304
  Serious: Yes (Hospitalization)
  Sender: FDA-Public Use
  Company Number: KR-TEVA-602443ISR

PATIENT
  Age: 54 Year
  Sex: Female

DRUGS (2)
  1. DOXORUBICIN [Suspect]
     Active Substance: DOXORUBICIN
     Indication: MALIGNANT NEOPLASM OF LACRIMAL DUCT
     Dosage: 25 MG/M2 FOR 3 DAYS FROM DAY 1 EVERY 21 DAYS
     Route: 042
  2. CISPLATIN. [Suspect]
     Active Substance: CISPLATIN
     Indication: MALIGNANT NEOPLASM OF LACRIMAL DUCT
     Dosage: 80 MG/M2 OVER 1 HOUR ON DAY 1 EVERY 21 DAYS
     Route: 013

REACTIONS (4)
  - Viral infection [Unknown]
  - Cellulitis [Unknown]
  - Febrile neutropenia [Unknown]
  - Phlebitis [Unknown]
